FAERS Safety Report 4401060-4 (Version None)
Quarter: 2004Q3

REPORT INFORMATION
  Report Type: 
  Country: None (occurrence: None)
  Receive Date: 20040907
  Receipt Date: 20031013
  Transmission Date: 20050211
  Serious: No
  Sender: FDA-Public Use
  Company Number: US-BRISTOL-MYERS SQUIBB COMPANY-12409967

PATIENT
  Age: 50 Year
  Sex: Male
  Weight: 100 kg

DRUGS (7)
  1. COUMADIN [Suspect]
     Dosage: FOR PAST 2 YRS ON VARYING DOSAGES FROM 20MG, 15MG AND 10MG,UP TO 20MG ON 10-OCT-03
     Route: 048
  2. ALDACTONE [Concomitant]
  3. ZAROXOLYN [Concomitant]
  4. COREG [Concomitant]
  5. MAGNESIUM OXIDE [Concomitant]
  6. DIOVAN [Concomitant]
  7. DEMADEX [Concomitant]

REACTIONS (1)
  - INTERNATIONAL NORMALISED RATIO DECREASED [None]
